FAERS Safety Report 20113710 (Version 1)
Quarter: 2021Q4

REPORT INFORMATION
  Report Type: Spontaneous
  Country: OM (occurrence: OM)
  Receive Date: 20211125
  Receipt Date: 20211125
  Transmission Date: 20220303
  Serious: Yes (Other)
  Sender: FDA-Public Use
  Company Number: OM-NOVARTISPH-NVSC2021OM263053

PATIENT
  Age: 36 Year
  Sex: Female

DRUGS (1)
  1. ADAKVEO [Suspect]
     Active Substance: CRIZANLIZUMAB-TMCA
     Indication: Sickle cell anaemia with crisis
     Dosage: 300 MG, QMO (INTO BLOODSTREAM VIA VEIN)
     Route: 042

REACTIONS (3)
  - Neuropathy peripheral [Unknown]
  - Facial paralysis [Unknown]
  - Abdominal pain [Unknown]
